FAERS Safety Report 17625340 (Version 1)
Quarter: 2020Q2

REPORT INFORMATION
  Report Type: Spontaneous
  Country: US (occurrence: US)
  Receive Date: 20200403
  Receipt Date: 20200403
  Transmission Date: 20200713
  Serious: Yes (Hospitalization, Other)
  Sender: FDA-Public Use
  Company Number: US-NAPPMUNDI-USA-2002-0000577

PATIENT
  Age: 22 Year
  Sex: Female
  Weight: 52.15 kg

DRUGS (15)
  1. TYLOX [Suspect]
     Active Substance: ACETAMINOPHEN\OXYCODONE HYDROCHLORIDE
     Indication: PRODUCT USED FOR UNKNOWN INDICATION
     Dosage: UNK TABLET, UNK
     Route: 065
  2. LORTAB [Suspect]
     Active Substance: ACETAMINOPHEN\HYDROCODONE BITARTRATE
     Indication: PRODUCT USED FOR UNKNOWN INDICATION
     Dosage: UNK TABLET, UNK
     Route: 065
  3. VICODIN [Suspect]
     Active Substance: ACETAMINOPHEN\HYDROCODONE BITARTRATE
     Indication: PRODUCT USED FOR UNKNOWN INDICATION
     Dosage: UNK TABLET, UNK
     Route: 065
  4. KEFLEX [Concomitant]
     Active Substance: CEPHALEXIN
     Indication: PRODUCT USED FOR UNKNOWN INDICATION
     Dosage: 500 MG, Q6H
     Route: 048
     Dates: start: 20000728, end: 2000
  5. HYDROCODONE BITARTRATE AND ACETAMINOPHEN [Suspect]
     Active Substance: ACETAMINOPHEN\HYDROCODONE BITARTRATE
     Indication: PAIN
     Route: 048
  6. NORCO [Suspect]
     Active Substance: ACETAMINOPHEN\HYDROCODONE BITARTRATE
     Indication: PAIN
     Route: 065
  7. TYLENOL WITH CODEINE [Suspect]
     Active Substance: ACETAMINOPHEN\CODEINE PHOSPHATE
     Indication: PRODUCT USED FOR UNKNOWN INDICATION
     Dosage: UNK TABLET, UNK
     Route: 065
  8. TRAZODONE [Concomitant]
     Active Substance: TRAZODONE HYDROCHLORIDE
     Indication: PRODUCT USED FOR UNKNOWN INDICATION
     Dosage: 100 MG, NOCTE
     Route: 048
  9. OXYCONTIN [Suspect]
     Active Substance: OXYCODONE HYDROCHLORIDE
     Indication: PAIN
     Dosage: 20 MG, UNK
     Route: 065
     Dates: start: 200003
  10. AMFETAMINE [Suspect]
     Active Substance: AMPHETAMINE
     Indication: PRODUCT USED FOR UNKNOWN INDICATION
     Dosage: UNK UNK, UNK
     Route: 065
  11. MARIJUANA [Suspect]
     Active Substance: CANNABIS SATIVA SUBSP. INDICA TOP
     Indication: PRODUCT USED FOR UNKNOWN INDICATION
     Dosage: UNK UNK, UNK
     Route: 065
  12. XANAX [Suspect]
     Active Substance: ALPRAZOLAM
     Indication: PRODUCT USED FOR UNKNOWN INDICATION
     Dosage: UNK TABLET, UNK
     Route: 065
  13. OXYCODONE HCL CR TABLETS (SIMILAR TO NDA 22-272) [Suspect]
     Active Substance: OXYCODONE HYDROCHLORIDE
     Indication: PAIN
     Route: 048
  14. PRAZAC                             /00338402/ [Concomitant]
     Indication: PRODUCT USED FOR UNKNOWN INDICATION
     Dosage: 20 MG, DAILY
     Route: 048
  15. COCAINE [Suspect]
     Active Substance: COCAINE
     Indication: PRODUCT USED FOR UNKNOWN INDICATION
     Dosage: UNK UNK, UNK
     Route: 065

REACTIONS (35)
  - Psychotic disorder [Unknown]
  - Paranoia [Unknown]
  - Pain [Unknown]
  - Sunburn [Unknown]
  - Nausea [Unknown]
  - Decreased appetite [Unknown]
  - Aggression [Unknown]
  - Drug withdrawal syndrome [Unknown]
  - Suicide attempt [Unknown]
  - Rhinorrhoea [Unknown]
  - Loss of consciousness [Unknown]
  - Weight decreased [Unknown]
  - Disturbance in attention [Unknown]
  - Nephrolithiasis [Unknown]
  - Cold sweat [Unknown]
  - Depression [Unknown]
  - Haematuria [Unknown]
  - Renal colic [Unknown]
  - Arthralgia [Unknown]
  - Tremor [Unknown]
  - Abdominal pain [Unknown]
  - Anxiety [Unknown]
  - Night sweats [Unknown]
  - Insomnia [Unknown]
  - Depersonalisation/derealisation disorder [Unknown]
  - Vomiting [Unknown]
  - Liver function test abnormal [Unknown]
  - Drug dependence [Unknown]
  - Muscle spasms [Unknown]
  - Affect lability [Unknown]
  - Fatigue [Unknown]
  - Headache [Unknown]
  - Quality of life decreased [Unknown]
  - Emotional disorder [Unknown]
  - Drug abuse [Unknown]

NARRATIVE: CASE EVENT DATE: 200004
